FAERS Safety Report 8371943-1 (Version None)
Quarter: 2012Q2

REPORT INFORMATION
  Report Type: 
  Country: None (occurrence: None)
  Receive Date: 20120518
  Receipt Date: 20120514
  Transmission Date: 20120825
  Serious: Yes (Hospitalization, Other)
  Sender: FDA-Public Use
  Company Number: US-MERCK-1103USA00992

PATIENT
  Age: 56 Year
  Sex: Female
  Weight: 66 kg

DRUGS (5)
  1. FOSAMAX [Suspect]
     Indication: OSTEOPENIA
     Route: 048
     Dates: start: 19950101, end: 20001201
  2. VITAMIN D (UNSPECIFIED) [Concomitant]
     Indication: OSTEOPENIA
     Route: 065
     Dates: start: 20090101
  3. FOSAMAX [Suspect]
     Route: 048
     Dates: start: 20010101, end: 20080302
  4. ALENDRONATE SODIUM [Suspect]
     Indication: OSTEOPENIA
     Route: 048
     Dates: start: 20080303, end: 20080801
  5. CALCIUM (UNSPECIFIED) [Concomitant]
     Indication: OSTEOPENIA
     Route: 065
     Dates: start: 20060101

REACTIONS (18)
  - ARTHRITIS [None]
  - SCOLIOSIS [None]
  - PAIN IN EXTREMITY [None]
  - FATIGUE [None]
  - TOOTH DISORDER [None]
  - FEMUR FRACTURE [None]
  - HAEMORRHOIDS [None]
  - VARICOSE VEIN [None]
  - ATRIAL FIBRILLATION [None]
  - FRACTURE [None]
  - FALL [None]
  - LUMBAR RADICULOPATHY [None]
  - INTERVERTEBRAL DISC DEGENERATION [None]
  - BREAST CANCER [None]
  - SPINAL OSTEOARTHRITIS [None]
  - SPINAL COLUMN STENOSIS [None]
  - INSOMNIA [None]
  - LOW TURNOVER OSTEOPATHY [None]
